FAERS Safety Report 25835349 (Version 1)
Quarter: 2025Q3

REPORT INFORMATION
  Report Type: Spontaneous
  Country: EU (occurrence: EU)
  Receive Date: 20250923
  Receipt Date: 20250923
  Transmission Date: 20251021
  Serious: Yes (Hospitalization)
  Sender: TEVA
  Company Number: None

PATIENT
  Age: 83 Year
  Sex: Female
  Weight: 48 kg

DRUGS (7)
  1. CLOPIDOGREL [Suspect]
     Active Substance: CLOPIDOGREL BISULFATE
     Indication: Thrombosis prophylaxis
     Route: 065
  2. CLOPIDOGREL [Suspect]
     Active Substance: CLOPIDOGREL BISULFATE
     Indication: Thrombosis prophylaxis
     Dosage: 75 MG, QD
     Route: 065
     Dates: start: 20141122
  3. ASPIRIN [Suspect]
     Active Substance: ASPIRIN
     Indication: Thrombosis prophylaxis
     Dosage: 100 MG, QD
     Route: 065
     Dates: start: 2011
  4. ASPIRIN [Suspect]
     Active Substance: ASPIRIN
     Indication: Thrombosis prophylaxis
     Route: 065
  5. ENOXAPARIN [Suspect]
     Active Substance: ENOXAPARIN
     Indication: Acute coronary syndrome
     Dosage: 40 MG, QD
     Route: 065
     Dates: start: 20141121, end: 20141204
  6. ENOXAPARIN [Suspect]
     Active Substance: ENOXAPARIN
     Indication: Acute coronary syndrome
     Route: 065
  7. PLACEBO [Suspect]
     Active Substance: PLACEBO
     Indication: Cardiac failure acute
     Route: 042
     Dates: start: 20141119, end: 20141121

REACTIONS (2)
  - Renal impairment [Recovering/Resolving]
  - Anaemia [Recovering/Resolving]

NARRATIVE: CASE EVENT DATE: 20141127
